FAERS Safety Report 16887427 (Version 2)
Quarter: 2020Q1

REPORT INFORMATION
  Report Type: Spontaneous
  Country: FR (occurrence: FR)
  Receive Date: 20191004
  Receipt Date: 20200109
  Transmission Date: 20200409
  Serious: Yes (Hospitalization, Other)
  Sender: FDA-Public Use
  Company Number: FR-BRISTOL-MYERS SQUIBB COMPANY-BMS-2019-094585

PATIENT
  Age: 72 Year
  Sex: Male

DRUGS (1)
  1. NIVOLUMAB [Suspect]
     Active Substance: NIVOLUMAB
     Indication: NON-SMALL CELL LUNG CANCER
     Dosage: UNK, Q2WK
     Route: 065

REACTIONS (4)
  - Adrenal insufficiency [Unknown]
  - Gastritis [Unknown]
  - General physical health deterioration [Unknown]
  - Weight decreased [Unknown]
